FAERS Safety Report 8386812-0 (Version None)
Quarter: 2012Q2

REPORT INFORMATION
  Report Type: 
  Country: None (occurrence: None)
  Receive Date: 20120525
  Receipt Date: 20120517
  Transmission Date: 20120825
  Serious: Yes (Hospitalization)
  Sender: FDA-Public Use
  Company Number: GB-BAXTER-2012BAX006007

PATIENT
  Sex: Female

DRUGS (1)
  1. EXTRANEAL [Suspect]
     Indication: PERITONEAL DIALYSIS
     Route: 033

REACTIONS (7)
  - NAUSEA [None]
  - ABDOMINAL DISTENSION [None]
  - PERITONEAL DIALYSIS COMPLICATION [None]
  - DISCOMFORT [None]
  - ABDOMINAL PAIN [None]
  - COLD SWEAT [None]
  - MALAISE [None]
